FAERS Safety Report 23371247 (Version 1)
Quarter: 2024Q1

REPORT INFORMATION
  Report Type: Report from Study
  Country: US (occurrence: US)
  Receive Date: 20240105
  Receipt Date: 20240105
  Transmission Date: 20240410
  Serious: Yes (Other)
  Sender: FDA-Public Use
  Company Number: US-SHIRE-US201905365AA

PATIENT
  Sex: Male

DRUGS (1)
  1. HUMAN IMMUNOGLOBULIN G [Suspect]
     Active Substance: HUMAN IMMUNOGLOBULIN G
     Indication: Primary immunodeficiency syndrome
     Dosage: 11 GRAM, 1/WEEK
     Route: 065

REACTIONS (7)
  - Von Willebrand^s disease [Unknown]
  - Haemorrhage [Unknown]
  - Fungal infection [Recovering/Resolving]
  - Inability to afford medication [Unknown]
  - Respiratory tract infection [Not Recovered/Not Resolved]
  - Dysphonia [Recovering/Resolving]
  - Rash [Recovering/Resolving]
